FAERS Safety Report 6079645-1 (Version None)
Quarter: 2009Q1

REPORT INFORMATION
  Report Type: 
  Country: None (occurrence: None)
  Receive Date: 20090212
  Receipt Date: 20090120
  Transmission Date: 20090719
  Serious: Yes (Other)
  Sender: FDA-Public Use
  Company Number: 151622

PATIENT
  Age: 50 Year
  Sex: Male

DRUGS (6)
  1. METHOTREXATE [Suspect]
     Indication: PSORIASIS
     Dosage: 7.5-22.5 MG/WEEK; 2.5-10 MG/WEEK (INTERMITTENT)
     Dates: start: 19980101
  2. (MABTHERA) [Concomitant]
  3. CYCLOPHOSPHAMIDE [Concomitant]
  4. ADRIAMYCIN PFS [Concomitant]
  5. ONCOVIN [Concomitant]
  6. (PREDNISOLONE) [Concomitant]

REACTIONS (14)
  - BLOOD LACTATE DEHYDROGENASE INCREASED [None]
  - DIFFUSE LARGE B-CELL LYMPHOMA [None]
  - DYSPHAGIA [None]
  - EPSTEIN-BARR VIRUS INFECTION [None]
  - JOINT STIFFNESS [None]
  - PANCYTOPENIA [None]
  - PLATELET COUNT DECREASED [None]
  - PRURITUS [None]
  - PYREXIA [None]
  - SKIN EXFOLIATION [None]
  - SPLEEN DISORDER [None]
  - TONSILLAR HYPERTROPHY [None]
  - TONSILLAR ULCER [None]
  - TUMOUR NECROSIS [None]
